FAERS Safety Report 5968538-3 (Version None)
Quarter: 2008Q4

REPORT INFORMATION
  Report Type: 
  Country: None (occurrence: None)
  Receive Date: 20081119
  Receipt Date: 20080806
  Transmission Date: 20090506
  Serious: No
  Sender: FDA-Public Use
  Company Number: WAES 0803USA04638

PATIENT
  Age: 35 Year
  Sex: Female

DRUGS (1)
  1. JANUVIA [Suspect]
     Indication: BLOOD GLUCOSE
     Dosage: 100 MG/DAILY/PO
     Route: 048

REACTIONS (2)
  - ARTHRALGIA [None]
  - PAIN [None]
